FAERS Safety Report 7441857-X (Version None)
Quarter: 2011Q2

REPORT INFORMATION
  Report Type: 
  Country: None (occurrence: None)
  Receive Date: 20110428
  Receipt Date: 20110419
  Transmission Date: 20111010
  Serious: Yes (Hospitalization)
  Sender: FDA-Public Use
  Company Number: JP-ELI_LILLY_AND_COMPANY-JP201007006998

PATIENT
  Sex: Female
  Weight: 44 kg

DRUGS (5)
  1. CYMBALTA [Suspect]
     Indication: DEPRESSION
     Dosage: 20 MG, QD
     Route: 048
     Dates: start: 20100624
  2. ZOLOFT [Concomitant]
  3. SOLANAX [Concomitant]
  4. MEILAX [Concomitant]
  5. DOGMATYL [Concomitant]
     Route: 048

REACTIONS (2)
  - DECREASED APPETITE [None]
  - ACUTE HEPATIC FAILURE [None]
